FAERS Safety Report 4581936-8 (Version None)
Quarter: 2005Q1

REPORT INFORMATION
  Report Type: 
  Country: None (occurrence: None)
  Receive Date: 20050214
  Receipt Date: 20021104
  Transmission Date: 20050727
  Serious: Yes (Hospitalization)
  Sender: FDA-Public Use
  Company Number: US-GLAXOSMITHKLINE-A0385550A

PATIENT
  Age: 29 Year
  Sex: Female

DRUGS (4)
  1. LAMICTAL [Suspect]
     Route: 048
  2. AMOXICILLIN [Suspect]
     Indication: EAR INFECTION
  3. TOPIRAMATE [Concomitant]
  4. ALLEGRA [Concomitant]

REACTIONS (2)
  - PYREXIA [None]
  - RASH [None]
